FAERS Safety Report 23558193 (Version 1)
Quarter: 2024Q1

REPORT INFORMATION
  Report Type: Spontaneous
  Country: US (occurrence: None)
  Receive Date: 20240223
  Receipt Date: 20240223
  Transmission Date: 20240410
  Serious: No
  Sender: FDA-Public Use
  Company Number: 2024A039493

PATIENT
  Sex: Female

DRUGS (1)
  1. BREZTRI [Suspect]
     Active Substance: BUDESONIDE\FORMOTEROL\GLYCOPYRROLATE
     Route: 055
     Dates: start: 2023

REACTIONS (8)
  - Visual impairment [Unknown]
  - Diplopia [Unknown]
  - Ocular discomfort [Unknown]
  - Ophthalmoplegia [Unknown]
  - Strabismus [Unknown]
  - Eye pain [Unknown]
  - Eye swelling [Unknown]
  - Headache [Unknown]
